FAERS Safety Report 6329115-8 (Version None)
Quarter: 2009Q3

REPORT INFORMATION
  Report Type: 
  Country: None (occurrence: None)
  Receive Date: 20090826
  Receipt Date: 20090817
  Transmission Date: 20100115
  Serious: Yes (Other)
  Sender: FDA-Public Use
  Company Number: CN-ROCHE-650808

PATIENT
  Age: 46 Year
  Sex: Female
  Weight: 52 kg

DRUGS (3)
  1. PEG-INTERFERON ALFA 2A (RO 25-8310) [Suspect]
     Indication: HEPATITIS C
     Route: 058
     Dates: start: 20090701
  2. RIBAVIRIN (NON-ROCHE) [Concomitant]
     Indication: HEPATITIS C
     Route: 048
     Dates: start: 20090701
  3. UNSPECIFIED DRUG [Concomitant]
     Dosage: THE DRUG WAS USED TO INCREASE THE PATIENT'S WBC COUNT.
     Dates: start: 20090701

REACTIONS (2)
  - SERUM FERRITIN INCREASED [None]
  - WHITE BLOOD CELL COUNT DECREASED [None]
